FAERS Safety Report 6721104-4 (Version None)
Quarter: 2010Q2

REPORT INFORMATION
  Report Type: 
  Country: None (occurrence: None)
  Receive Date: 20100512
  Receipt Date: 20100506
  Transmission Date: 20101027
  Serious: Yes (Death)
  Sender: FDA-Public Use
  Company Number: US-CELGENEUS-163-21880-10030608

PATIENT
  Sex: Male

DRUGS (3)
  1. REVLIMID [Suspect]
     Indication: MULTIPLE MYELOMA
     Route: 048
     Dates: start: 20100208, end: 20100217
  2. REVLIMID [Suspect]
     Route: 048
     Dates: start: 20080701, end: 20090101
  3. REVLIMID [Suspect]
     Route: 048
     Dates: start: 20100101

REACTIONS (3)
  - DEATH [None]
  - OSTEOLYSIS [None]
  - PNEUMONIA [None]
